FAERS Safety Report 9011520 (Version 2)
Quarter: 2013Q1

REPORT INFORMATION
  Report Type: Spontaneous
  Country: IT (occurrence: IT)
  Receive Date: 20130108
  Receipt Date: 20130308
  Transmission Date: 20140127
  Serious: Yes (Hospitalization)
  Sender: FDA-Public Use
  Company Number: IT-JNJFOC-20130100203

PATIENT
  Age: 40 Year
  Sex: Female

DRUGS (4)
  1. HALDOL [Suspect]
     Indication: PSYCHOTIC DISORDER
     Dosage: 30 ML, 0.2%
     Route: 048
     Dates: start: 20121228
  2. HALDOL [Suspect]
     Indication: PSYCHOTIC DISORDER
     Dosage: 30 ML,0.2 %
     Route: 048
     Dates: start: 20121229, end: 20121229
  3. STILNOX [Suspect]
     Indication: INSOMNIA
     Route: 065
     Dates: start: 201106
  4. STILNOX [Suspect]
     Indication: INSOMNIA
     Dosage: 30 10MG TABLET
     Route: 065

REACTIONS (4)
  - Self injurious behaviour [Recovering/Resolving]
  - Intentional overdose [Recovering/Resolving]
  - Sopor [Recovering/Resolving]
  - Treatment noncompliance [Unknown]
